FAERS Safety Report 10648146 (Version 1)
Quarter: 2014Q4

REPORT INFORMATION
  Report Type: Spontaneous
  Country: US (occurrence: None)
  Receive Date: 20141211
  Receipt Date: 20141211
  Transmission Date: 20150529
  Serious: No
  Sender: FDA-Public Use
  Company Number: None

PATIENT
  Age: 39 Year
  Sex: Male
  Weight: 135.17 kg

DRUGS (1)
  1. TRAZODONE [Suspect]
     Active Substance: TRAZODONE HYDROCHLORIDE
     Dosage: 150MG/2 PILLS = 300MG ONCE DAILY TAKEN BY MOUTH
     Route: 048

REACTIONS (4)
  - Dizziness [None]
  - Nausea [None]
  - Vomiting [None]
  - Fall [None]
